FAERS Safety Report 10785034 (Version 1)
Quarter: 2015Q1

REPORT INFORMATION
  Report Type: Spontaneous
  Country: US (occurrence: US)
  Receive Date: 20150211
  Receipt Date: 20150211
  Transmission Date: 20150721
  Serious: No
  Sender: FDA-Public Use
  Company Number: US-GLAXOSMITHKLINE-A1075502A

PATIENT

DRUGS (4)
  1. ALPRAZOLAM. [Concomitant]
     Active Substance: ALPRAZOLAM
  2. CARBATROL [Concomitant]
     Active Substance: CARBAMAZEPINE
  3. LISINOPRIL. [Concomitant]
     Active Substance: LISINOPRIL
  4. LAMICTAL [Suspect]
     Active Substance: LAMOTRIGINE
     Indication: COMPLEX PARTIAL SEIZURES
     Dosage: 150 MG DOSEPREVIOUSLY RECEIVED 100 MG STRENGTH
     Route: 048
     Dates: start: 20030819

REACTIONS (1)
  - Panic attack [Not Recovered/Not Resolved]

NARRATIVE: CASE EVENT DATE: 201306
